FAERS Safety Report 5820082-X (Version None)
Quarter: 2008Q3

REPORT INFORMATION
  Report Type: 
  Country: None (occurrence: None)
  Receive Date: 20080718
  Receipt Date: 20080718
  Transmission Date: 20090109
  Serious: Yes (Hospitalization)
  Sender: FDA-Public Use
  Company Number: None

PATIENT
  Sex: Male
  Weight: 77.5 kg

DRUGS (1)
  1. TAXOTERE [Suspect]
     Dosage: 142 MG

REACTIONS (3)
  - CAMPYLOBACTER INTESTINAL INFECTION [None]
  - DIARRHOEA [None]
  - NEUTROPENIA [None]
